FAERS Safety Report 6380209-0 (Version None)
Quarter: 2009Q3

REPORT INFORMATION
  Report Type: 
  Country: None (occurrence: None)
  Receive Date: 20090923
  Receipt Date: 20090908
  Transmission Date: 20100115
  Serious: Yes (Hospitalization)
  Sender: FDA-Public Use
  Company Number: AUR-APL-2009-00622

PATIENT
  Age: 69 Year
  Sex: Male

DRUGS (6)
  1. ATENOLOL [Suspect]
  2. RAMIPRIL [Suspect]
     Indication: HYPERTENSION
     Dates: start: 19980101
  3. ASPIRIN [Suspect]
  4. AMITRIPTYLINE [Suspect]
  5. ATORVASTATIN [Suspect]
  6. FELODIPINE [Suspect]

REACTIONS (6)
  - DROOLING [None]
  - LIP SWELLING [None]
  - POST PROCEDURAL COMPLICATION [None]
  - PROTRUSION TONGUE [None]
  - SWELLING FACE [None]
  - SWOLLEN TONGUE [None]
